FAERS Safety Report 15935913 (Version 2)
Quarter: 2019Q1

REPORT INFORMATION
  Report Type: Spontaneous
  Country: JP (occurrence: JP)
  Receive Date: 20190208
  Receipt Date: 20190225
  Transmission Date: 20190417
  Serious: Yes (Hospitalization, Disabling, Other)
  Sender: FDA-Public Use
  Company Number: JP-REGENERON PHARMACEUTICALS, INC.-2019-11145

PATIENT

DRUGS (6)
  1. LEVOFLOXACIN HEMIHYDRATE [Concomitant]
     Active Substance: LEVOFLOXACIN
     Dosage: RIGHT EYE, QID
     Route: 047
     Dates: start: 20181208, end: 20181214
  2. SULTAMICILLIN [Concomitant]
     Active Substance: SULTAMICILLIN
     Dosage: UNK
     Dates: start: 20190112, end: 20190117
  3. EYLEA [Suspect]
     Active Substance: AFLIBERCEPT
     Dosage: 2 MG,RIGHT EYE
     Route: 031
     Dates: start: 20181211, end: 20181211
  4. SULTAMICILLIN [Concomitant]
     Active Substance: SULTAMICILLIN
     Indication: PNEUMONIA
     Dosage: UNK
     Dates: start: 20181229, end: 20190107
  5. LEVOFLOXACIN HEMIHYDRATE [Concomitant]
     Active Substance: LEVOFLOXACIN
     Indication: PRODUCT USED FOR UNKNOWN INDICATION
     Dosage: LEFT EYE, QID
     Route: 047
     Dates: start: 20181110, end: 20181116
  6. EYLEA [Suspect]
     Active Substance: AFLIBERCEPT
     Indication: RETINAL VEIN OCCLUSION
     Dosage: 2 MG,LEFT EYE
     Route: 031
     Dates: start: 20181113, end: 20181113

REACTIONS (5)
  - Cerebral infarction [Recovered/Resolved with Sequelae]
  - Altered state of consciousness [Recovering/Resolving]
  - Pneumonia [Unknown]
  - Quadriplegia [Not Recovered/Not Resolved]
  - Pyrexia [Recovering/Resolving]

NARRATIVE: CASE EVENT DATE: 20181216
